FAERS Safety Report 6139529-7 (Version None)
Quarter: 2009Q1

REPORT INFORMATION
  Report Type: 
  Country: None (occurrence: None)
  Receive Date: 20090324
  Receipt Date: 20090320
  Transmission Date: 20090719
  Serious: Yes (Hospitalization)
  Sender: FDA-Public Use
  Company Number: 2009AL001698

PATIENT
  Age: 83 Year
  Sex: Female

DRUGS (1)
  1. DIGOXIN [Suspect]
     Indication: CARDIAC DISORDER
     Dosage: 0.125MG, QD, PO
     Route: 048

REACTIONS (1)
  - CEREBROVASCULAR ACCIDENT [None]
